FAERS Safety Report 5036145-5 (Version None)
Quarter: 2006Q2

REPORT INFORMATION
  Report Type: 
  Country: None (occurrence: None)
  Receive Date: 20060531
  Receipt Date: 20060328
  Transmission Date: 20061013
  Serious: No
  Sender: FDA-Public Use
  Company Number: PHEH2006US02619

PATIENT
  Age: 29 Year
  Sex: Male

DRUGS (3)
  1. EXJADE [Suspect]
     Indication: BLOOD IRON INCREASED
     Dosage: SEE IMAGE
     Dates: start: 20060208, end: 20060215
  2. EXJADE [Suspect]
     Indication: BLOOD IRON INCREASED
     Dosage: SEE IMAGE
     Dates: start: 20060317, end: 20060317
  3. LEVOXYL [Concomitant]

REACTIONS (2)
  - RASH [None]
  - SWELLING FACE [None]
